FAERS Safety Report 9295080 (Version 3)
Quarter: 2013Q3

REPORT INFORMATION
  Report Type: Report from Study
  Country: US (occurrence: US)
  Receive Date: 20130517
  Receipt Date: 20130722
  Transmission Date: 20140515
  Serious: Yes (Death, Hospitalization)
  Sender: FDA-Public Use
  Company Number: US-ACTELION-A-NJ2013-83260

PATIENT
  Age: 70 Year
  Sex: Female

DRUGS (3)
  1. TRACLEER [Suspect]
     Indication: PULMONARY ARTERIAL HYPERTENSION
     Dosage: UNK
     Route: 048
     Dates: end: 20130619
  2. OXYCODONE [Suspect]
     Dosage: 5 MG, UNK
  3. SILDENAFIL [Concomitant]

REACTIONS (6)
  - Death [Fatal]
  - Cerebral haemorrhage [Recovering/Resolving]
  - Fall [Not Recovered/Not Resolved]
  - Facial bones fracture [Unknown]
  - Joint injury [Not Recovered/Not Resolved]
  - Pruritus [Not Recovered/Not Resolved]
